FAERS Safety Report 25155410 (Version 1)
Quarter: 2025Q2

REPORT INFORMATION
  Report Type: Spontaneous
  Country: JP (occurrence: JP)
  Receive Date: 20250403
  Receipt Date: 20250403
  Transmission Date: 20250717
  Serious: Yes (Other)
  Sender: PIERRE FABRE MEDICAMENT
  Company Number: JP-maruho-EVC202500103PFM

PATIENT
  Age: 4 Day
  Sex: Female
  Weight: 2.896 kg

DRUGS (2)
  1. PROPRANOLOL HYDROCHLORIDE [Suspect]
     Active Substance: PROPRANOLOL HYDROCHLORIDE
     Indication: Haemangioma of liver
     Route: 065
  2. PREDNISOLONE [Concomitant]
     Active Substance: PREDNISOLONE
     Indication: Haemangioma of liver
     Route: 065

REACTIONS (4)
  - Coagulation disorder neonatal [Recovering/Resolving]
  - Drug ineffective [Unknown]
  - Product administered to patient of inappropriate age [Unknown]
  - Off label use [Unknown]
